FAERS Safety Report 24592526 (Version 1)
Quarter: 2024Q4

REPORT INFORMATION
  Report Type: Spontaneous
  Country: US (occurrence: US)
  Receive Date: 20241108
  Receipt Date: 20241108
  Transmission Date: 20250115
  Serious: Yes (Hospitalization, Other)
  Sender: UNKNOWN
  Company Number: US-862174955-ML2024-05767

PATIENT
  Sex: Female

DRUGS (9)
  1. APIXABAN [Suspect]
     Active Substance: APIXABAN
     Indication: Pulmonary embolism
  2. BUPROPION [Suspect]
     Active Substance: BUPROPION
     Indication: Depression
     Dosage: 3 WEEKS PRIOR
  3. BUPROPION [Suspect]
     Active Substance: BUPROPION
     Indication: Anxiety
  4. PANTOPRAZOLE [Suspect]
     Active Substance: PANTOPRAZOLE
     Indication: Gastrooesophageal reflux disease
  5. PREDNISONE [Suspect]
     Active Substance: PREDNISONE
     Indication: COVID-19
  6. REMDESIVIR [Suspect]
     Active Substance: REMDESIVIR
     Indication: COVID-19
  7. RITUXIMAB [Suspect]
     Active Substance: RITUXIMAB
     Indication: Rheumatoid arthritis
     Dosage: WAS ON HOLD FOR THE PRIOR 4-5 MONTHS)
  8. ACYCLOVIR [Concomitant]
     Active Substance: ACYCLOVIR
     Indication: Immunosuppression
     Dosage: 10 MG/KG EVERY  8 HOURS
  9. FAMCICLOVIR [Concomitant]
     Active Substance: FAMCICLOVIR
     Indication: Disseminated varicella zoster virus infection
     Route: 048

REACTIONS (1)
  - Acute generalised exanthematous pustulosis [Unknown]
